FAERS Safety Report 5487335-9 (Version None)
Quarter: 2007Q4

REPORT INFORMATION
  Report Type: 
  Country: None (occurrence: None)
  Receive Date: 20071016
  Receipt Date: 20071004
  Transmission Date: 20080405
  Serious: Yes (Other)
  Sender: FDA-Public Use
  Company Number: FR-PFIZER INC-2007072965

PATIENT
  Sex: Male

DRUGS (10)
  1. VIAGRA [Suspect]
     Indication: ERECTILE DYSFUNCTION
  2. IRBESARTAN [Concomitant]
  3. DOXAZOSIN MESYLATE [Concomitant]
  4. DIFFU K [Concomitant]
  5. ESIDRIX [Concomitant]
  6. METEOXANE [Concomitant]
  7. LAROXYL [Concomitant]
  8. ASPEGIC 325 [Concomitant]
  9. MAGNE-B6 [Concomitant]
  10. SIFROL [Concomitant]

REACTIONS (2)
  - MUSCLE SPASMS [None]
  - MYALGIA [None]
